FAERS Safety Report 8409555-3 (Version None)
Quarter: 2012Q2

REPORT INFORMATION
  Report Type: 
  Country: None (occurrence: None)
  Receive Date: 20120529
  Receipt Date: 20060526
  Transmission Date: 20120825
  Serious: Yes (Hospitalization)
  Sender: FDA-Public Use
  Company Number: 15691-USA-06-1458

PATIENT
  Age: 88 Year
  Sex: Female
  Weight: 67.7 kg

DRUGS (11)
  1. LASIX [Concomitant]
  2. TOLVAPTAN (TOLVAPTAN) TABLET, 1DF DOSAGE FORM [Suspect]
     Indication: HYPONATRAEMIA
     Dosage: 15 MG, QD, ORAL
     Route: 048
     Dates: start: 20050930, end: 20060525
  3. TOLVAPTAN (TOLVAPTAN) TABLET, 1DF DOSAGE FORM [Suspect]
     Indication: HYPONATRAEMIA
     Dosage: 15 MG, QD, ORAL
     Route: 048
     Dates: start: 20060601
  4. COUMADIN [Concomitant]
  5. POTASSIUM CHLORIDE [Concomitant]
  6. MULTIVITAMINS (ERGOCALCIFEROL, ASCORBIC ACID, FOLIC ACID, THIAMINE HYD [Concomitant]
  7. DIGOXIN [Concomitant]
  8. SYNTHROID [Concomitant]
  9. GLYBURIDE [Concomitant]
  10. METOPROLOL TARTRATE [Concomitant]
  11. COZAAR [Concomitant]

REACTIONS (35)
  - BLOOD CREATININE INCREASED [None]
  - BLOOD SODIUM DECREASED [None]
  - HYPOGLYCAEMIA [None]
  - MYOGLOBIN BLOOD INCREASED [None]
  - BLOOD GLUCOSE INCREASED [None]
  - ERYTHEMA [None]
  - HYPOTENSION [None]
  - UNRESPONSIVE TO STIMULI [None]
  - COLD SWEAT [None]
  - CARDIOMEGALY [None]
  - HYPOPHAGIA [None]
  - BLOOD CREATINE PHOSPHOKINASE INCREASED [None]
  - TOXICITY TO VARIOUS AGENTS [None]
  - HYPERHIDROSIS [None]
  - ATRIAL FLUTTER [None]
  - ACTIVATED PARTIAL THROMBOPLASTIN TIME PROLONGED [None]
  - DELIRIUM [None]
  - BLOOD CREATINE PHOSPHOKINASE MB INCREASED [None]
  - PROTHROMBIN TIME PROLONGED [None]
  - FALL [None]
  - DYSARTHRIA [None]
  - CONDITION AGGRAVATED [None]
  - CEREBRAL ARTERIOSCLEROSIS [None]
  - CONDUCTION DISORDER [None]
  - HYPOVOLAEMIA [None]
  - DEHYDRATION [None]
  - BLOOD UREA INCREASED [None]
  - DEMENTIA [None]
  - BLOOD CHLORIDE DECREASED [None]
  - OXYGEN SATURATION DECREASED [None]
  - CEREBRAL DISORDER [None]
  - INTERNATIONAL NORMALISED RATIO INCREASED [None]
  - LETHARGY [None]
  - INFECTION [None]
  - CAROTID ARTERY STENOSIS [None]
